FAERS Safety Report 7369391-6 (Version None)
Quarter: 2011Q1

REPORT INFORMATION
  Report Type: 
  Country: None (occurrence: None)
  Receive Date: 20110314
  Receipt Date: 20110303
  Transmission Date: 20110831
  Serious: Yes (Life-Threatening, Hospitalization)
  Sender: FDA-Public Use
  Company Number: 2011MA002166

PATIENT
  Age: 88 Year
  Sex: Female

DRUGS (8)
  1. FUROSEMIDE [Concomitant]
  2. FERROUS FUMARATE [Concomitant]
  3. AMITRIPTYLINE [Concomitant]
  4. NAPROXEN [Suspect]
     Dosage: 250 MG;BID;PO
     Route: 048
     Dates: start: 20110129, end: 20110223
  5. MOVIPREP [Concomitant]
  6. LEVOTHYROXINE SODIUM [Concomitant]
  7. OMEPRAZOLE [Concomitant]
  8. FOLIC ACID [Concomitant]

REACTIONS (1)
  - ACUTE RESPIRATORY DISTRESS SYNDROME [None]
